FAERS Safety Report 6964032-1 (Version None)
Quarter: 2010Q3

REPORT INFORMATION
  Report Type: 
  Country: None (occurrence: None)
  Receive Date: 20100902
  Receipt Date: 20100902
  Transmission Date: 20110219
  Serious: No
  Sender: FDA-Public Use
  Company Number: None

PATIENT
  Age: 74 Year
  Sex: Male

DRUGS (2)
  1. CALCIUM CARBONATE [Suspect]
     Indication: GASTROOESOPHAGEAL REFLUX DISEASE
     Dosage: 1.25 GM PM PO
     Route: 048
     Dates: start: 20100101, end: 20100615
  2. CALCITRIOL [Suspect]
     Indication: HYPERPARATHYROIDISM
     Dosage: 1.25 MCG EVERY DAY PO
     Route: 048
     Dates: start: 19991206

REACTIONS (8)
  - ASTHENIA [None]
  - CONSTIPATION [None]
  - DIZZINESS [None]
  - HYPERCALCAEMIA [None]
  - HYPOKALAEMIA [None]
  - HYPOMAGNESAEMIA [None]
  - MILK-ALKALI SYNDROME [None]
  - RENAL FAILURE ACUTE [None]
